FAERS Safety Report 10218003 (Version 1)
Quarter: 2014Q2

REPORT INFORMATION
  Report Type: Spontaneous
  Country: US (occurrence: US)
  Receive Date: 20140605
  Receipt Date: 20140605
  Transmission Date: 20141212
  Serious: No
  Sender: FDA-Public Use
  Company Number: US-BIOGENIDEC-2014BI046672

PATIENT
  Age: 55 Year
  Sex: Female

DRUGS (4)
  1. TECFIDERA [Suspect]
     Indication: MULTIPLE SCLEROSIS
     Route: 048
     Dates: start: 20140227
  2. HORMONE CREAM BASE [Concomitant]
  3. CALCIUM-MAGNESIUM-ZINC [Concomitant]
  4. STRONTIUM CHLORIDE [Concomitant]

REACTIONS (1)
  - Weight increased [Unknown]
